FAERS Safety Report 17151701 (Version 1)
Quarter: 2019Q4

REPORT INFORMATION
  Report Type: Spontaneous
  Country: US (occurrence: US)
  Receive Date: 20191121
  Receipt Date: 20191121
  Transmission Date: 20200122
  Serious: Yes (Other)
  Sender: FDA-Public Use
  Company Number: None

PATIENT
  Age: 21 Year

DRUGS (1)
  1. TOPIRAMATE. [Suspect]
     Active Substance: TOPIRAMATE

REACTIONS (9)
  - Anger [None]
  - Aggression [None]
  - Taste disorder [None]
  - Affective disorder [None]
  - Depersonalisation/derealisation disorder [None]
  - Schizoaffective disorder [None]
  - Delusion [None]
  - Catatonia [None]
  - Confusional state [None]

NARRATIVE: CASE EVENT DATE: 20191019
